FAERS Safety Report 12643827 (Version 1)
Quarter: 2016Q3

REPORT INFORMATION
  Report Type: Spontaneous
  Country: IT (occurrence: IT)
  Receive Date: 20160811
  Receipt Date: 20160811
  Transmission Date: 20161109
  Serious: Yes (Other)
  Sender: FDA-Public Use
  Company Number: IT-ROCHE-1812335

PATIENT
  Age: 60 Year
  Sex: Male

DRUGS (2)
  1. MABTHERA [Suspect]
     Active Substance: RITUXIMAB
     Indication: DEMYELINATING POLYNEUROPATHY
     Route: 041
     Dates: start: 20150330, end: 20150330
  2. TACHIPIRINA [Concomitant]
     Active Substance: ACETAMINOPHEN

REACTIONS (4)
  - Rash [Recovered/Resolved]
  - Laryngospasm [Recovered/Resolved]
  - Choking sensation [Recovered/Resolved]
  - Off label use [Unknown]

NARRATIVE: CASE EVENT DATE: 20150330
